FAERS Safety Report 15524857 (Version 2)
Quarter: 2019Q1

REPORT INFORMATION
  Report Type: Spontaneous
  Country: JP (occurrence: JP)
  Receive Date: 20181019
  Receipt Date: 20190101
  Transmission Date: 20190417
  Serious: Yes (Hospitalization, Other)
  Sender: FDA-Public Use
  Company Number: PHHY2018JP127551

PATIENT
  Age: 73 Year
  Sex: Female

DRUGS (3)
  1. CERTOLIZUMAB [Suspect]
     Active Substance: CERTOLIZUMAB
     Indication: RHEUMATOID ARTHRITIS
     Dosage: 200 MG, Q2W
     Route: 058
     Dates: start: 201601
  2. METHOTREXATE CAPSULE [Suspect]
     Active Substance: METHOTREXATE
     Indication: RHEUMATOID ARTHRITIS
     Dosage: 4 MG, QW
     Route: 048
     Dates: start: 200605
  3. METHOTREXATE CAPSULE [Suspect]
     Active Substance: METHOTREXATE
     Dosage: 4 MG, UNK
     Route: 048

REACTIONS (5)
  - Back pain [Recovering/Resolving]
  - Psoas abscess [Recovered/Resolved]
  - Pyrexia [Recovering/Resolving]
  - Salmonella sepsis [Recovering/Resolving]
  - Intervertebral discitis [Recovered/Resolved]

NARRATIVE: CASE EVENT DATE: 201607
